FAERS Safety Report 7098382-8 (Version None)
Quarter: 2010Q4

REPORT INFORMATION
  Report Type: 
  Country: None (occurrence: None)
  Receive Date: 20101112
  Receipt Date: 20101108
  Transmission Date: 20110411
  Serious: Yes (Disabling, Other)
  Sender: FDA-Public Use
  Company Number: US-PFIZER INC-2010110121

PATIENT
  Sex: Female

DRUGS (4)
  1. CHANTIX [Suspect]
     Indication: SMOKING CESSATION THERAPY
     Dosage: 0.5 MG, UNK
     Dates: start: 20080701, end: 20080730
  2. SIMVASTATIN [Concomitant]
     Indication: BLOOD CHOLESTEROL
     Dosage: UNK
     Dates: start: 20050101
  3. PRILOSEC [Concomitant]
     Indication: GASTROOESOPHAGEAL REFLUX DISEASE
     Dosage: UNK
     Dates: start: 20050101
  4. QUINAPRIL HCL AND HYDROCHLOROTHIAZIDE [Concomitant]
     Indication: BLOOD PRESSURE
     Dosage: UNK
     Dates: start: 20070101

REACTIONS (12)
  - ABNORMAL DREAMS [None]
  - AMNESIA [None]
  - ANXIETY [None]
  - ASTHENIA [None]
  - DEPRESSION [None]
  - DISTURBANCE IN ATTENTION [None]
  - INSOMNIA [None]
  - MENTAL DISORDER [None]
  - MIGRAINE [None]
  - MOOD SWINGS [None]
  - SUICIDAL IDEATION [None]
  - TREMOR [None]
